FAERS Safety Report 23743398 (Version 1)
Quarter: 2024Q2

REPORT INFORMATION
  Report Type: Spontaneous
  Country: GB (occurrence: GB)
  Receive Date: 20240415
  Receipt Date: 20240415
  Transmission Date: 20240715
  Serious: Yes (Other)
  Sender: FDA-Public Use
  Company Number: None

PATIENT
  Age: 42 Year
  Sex: Male
  Weight: 77 kg

DRUGS (10)
  1. MONTELUKAST [Suspect]
     Active Substance: MONTELUKAST SODIUM
     Indication: Adverse drug reaction
     Dosage: 10MG ONCE A DAY, STOPPED ON 21ST. SEVERE SYMPTOMS, ON 5MG TO TITRATE DOWN SLOWLY HENCE WHY SOME S...
     Dates: start: 20231011, end: 20240321
  2. AJOVY [Concomitant]
     Active Substance: FREMANEZUMAB-VFRM
     Indication: Migraine with aura
     Dates: start: 20211201
  3. FLUTICASONE PROPIONATE\FORMOTEROL FUMARATE [Concomitant]
     Active Substance: FLUTICASONE PROPIONATE\FORMOTEROL FUMARATE
     Indication: Asthma
     Dates: start: 20170101
  4. HYALURONATE SODIUM [Concomitant]
     Active Substance: HYALURONATE SODIUM
     Indication: Blepharitis
     Dates: start: 20240318
  5. CARBAMAZEPINE [Concomitant]
     Active Substance: CARBAMAZEPINE
     Indication: Adverse drug reaction
     Dates: start: 20201201
  6. FEXOFENADINE [Concomitant]
     Active Substance: FEXOFENADINE HYDROCHLORIDE
     Indication: Adverse drug reaction
     Dates: start: 20220701
  7. FUROSEMIDE [Concomitant]
     Active Substance: FUROSEMIDE
     Indication: Adverse drug reaction
     Dates: start: 20220601
  8. RAMIPRIL [Concomitant]
     Active Substance: RAMIPRIL
     Indication: Migraine with aura
     Dates: start: 20220801
  9. ALBUTEROL [Concomitant]
     Active Substance: ALBUTEROL
     Indication: Adverse drug reaction
     Dates: start: 20150101
  10. TERBINAFINE [Concomitant]
     Active Substance: TERBINAFINE
     Indication: Rash
     Dates: start: 20230701

REACTIONS (7)
  - Confusional state [Not Recovered/Not Resolved]
  - Brain fog [Not Recovered/Not Resolved]
  - Depressed mood [Recovering/Resolving]
  - Nervousness [Recovering/Resolving]
  - Psychiatric symptom [Recovering/Resolving]
  - Asthenia [Not Recovered/Not Resolved]
  - Anxiety [Recovering/Resolving]

NARRATIVE: CASE EVENT DATE: 20231101
